FAERS Safety Report 9289691 (Version 3)
Quarter: 2013Q4

REPORT INFORMATION
  Report Type: Spontaneous
  Country: US (occurrence: US)
  Receive Date: 20130515
  Receipt Date: 20131112
  Transmission Date: 20140711
  Serious: No
  Sender: FDA-Public Use
  Company Number: US-BIOGENIDEC-2013BI042527

PATIENT
  Sex: Female

DRUGS (1)
  1. TYSABRI [Suspect]
     Indication: MULTIPLE SCLEROSIS
     Route: 042
     Dates: start: 20120625

REACTIONS (12)
  - Memory impairment [Not Recovered/Not Resolved]
  - Decreased appetite [Not Recovered/Not Resolved]
  - Depression [Not Recovered/Not Resolved]
  - Central nervous system lesion [Unknown]
  - Abnormal behaviour [Not Recovered/Not Resolved]
  - Discomfort [Not Recovered/Not Resolved]
  - Faecal incontinence [Recovered/Resolved]
  - Pain [Recovered/Resolved]
  - Vein disorder [Unknown]
  - Decreased activity [Not Recovered/Not Resolved]
  - Infusion site pain [Recovered/Resolved]
  - Drug ineffective [Unknown]
